FAERS Safety Report 9379080 (Version 3)
Quarter: 2013Q3

REPORT INFORMATION
  Report Type: Spontaneous
  Country: NO (occurrence: NO)
  Receive Date: 20130702
  Receipt Date: 20130906
  Transmission Date: 20140515
  Serious: Yes (Other)
  Sender: FDA-Public Use
  Company Number: PHHY2013NO067238

PATIENT
  Age: 11 Year
  Sex: Male

DRUGS (1)
  1. RITALIN-SR [Suspect]
     Dosage: 20 MG, IN THE MORNING

REACTIONS (5)
  - Chest pain [Recovered/Resolved]
  - Electrocardiogram Q wave abnormal [Unknown]
  - Aggression [Not Recovered/Not Resolved]
  - Heart rate increased [Unknown]
  - Restlessness [Not Recovered/Not Resolved]
